FAERS Safety Report 22345572 (Version 1)
Quarter: 2023Q2

REPORT INFORMATION
  Report Type: Spontaneous
  Country: TW (occurrence: TW)
  Receive Date: 20230519
  Receipt Date: 20230519
  Transmission Date: 20230722
  Serious: Yes (Hospitalization, Other)
  Sender: FDA-Public Use
  Company Number: TW-DSJP-DSJ-2023-119352AA

PATIENT
  Age: 70 Year
  Sex: Male
  Weight: 60.9 kg

DRUGS (2)
  1. EDOXABAN [Suspect]
     Active Substance: EDOXABAN
     Indication: Atrial fibrillation
     Dosage: 60.0 MG
     Route: 048
  2. EDOXABAN [Suspect]
     Active Substance: EDOXABAN
     Indication: Prophylaxis

REACTIONS (5)
  - Altered state of consciousness [Unknown]
  - Cerebral haemorrhage [Recovering/Resolving]
  - Ear haemorrhage [Unknown]
  - Pyrexia [Unknown]
  - Asthenia [Unknown]
